FAERS Safety Report 9921274 (Version 1)
Quarter: 2014Q1

REPORT INFORMATION
  Report Type: Spontaneous
  Country: US (occurrence: US)
  Receive Date: 20140225
  Receipt Date: 20140225
  Transmission Date: 20141002
  Serious: Yes (Disabling)
  Sender: FDA-Public Use
  Company Number: US-GE HEALTHCARE MEDICAL DIAGNOSTICS-OSCN-PR-0901S-0023

PATIENT
  Age: 51 Year
  Sex: Female

DRUGS (2)
  1. OMNISCAN [Suspect]
     Indication: PYREXIA
     Route: 042
     Dates: start: 20050127, end: 20050127
  2. OMNISCAN [Suspect]
     Route: 042
     Dates: start: 20050221, end: 20050221

REACTIONS (1)
  - Nephrogenic systemic fibrosis [Not Recovered/Not Resolved]
